FAERS Safety Report 7451198-2 (Version None)
Quarter: 2011Q2

REPORT INFORMATION
  Report Type: 
  Country: None (occurrence: None)
  Receive Date: 20110502
  Receipt Date: 20110421
  Transmission Date: 20111010
  Serious: Yes (Other)
  Sender: FDA-Public Use
  Company Number: PHHY2011JP18224

PATIENT
  Sex: Male

DRUGS (11)
  1. CO-DIOVAN [Suspect]
     Indication: HYPERTENSION
     Dosage: 1 DF (80/6.25 MG), DAILY
     Route: 048
     Dates: start: 20100108
  2. ANISTO [Concomitant]
     Indication: HYPERTENSION
     Dosage: 20 MG
     Route: 048
     Dates: start: 20100108
  3. LANDEL [Concomitant]
     Indication: HYPERTENSION
     Dosage: 20 MG
     Route: 048
     Dates: start: 20100108
  4. LANDEL [Concomitant]
     Dosage: 40 MG
     Route: 048
  5. SPIRONOLACTONE [Concomitant]
     Dosage: 75 MG
     Route: 048
     Dates: start: 20100119
  6. LANDEL [Concomitant]
     Dosage: 20 MG
     Route: 048
  7. OXYBUTYNIN [Concomitant]
     Dosage: 4 MG
     Route: 048
     Dates: start: 20100108
  8. LANDEL [Concomitant]
     Dosage: 10 MG
     Dates: end: 20100907
  9. AMLODIPINE [Concomitant]
     Indication: HYPERTENSION
     Dosage: 5 MG
     Dates: start: 20100122, end: 20100508
  10. ROTIFAMIN [Concomitant]
     Dosage: 100 MG
     Route: 048
     Dates: start: 20100108
  11. PARKINES [Concomitant]
     Dosage: 6 MG
     Route: 048
     Dates: start: 20100514

REACTIONS (3)
  - RENAL DISORDER [None]
  - BLOOD PRESSURE DIASTOLIC DECREASED [None]
  - CONDITION AGGRAVATED [None]
